FAERS Safety Report 15238425 (Version 1)
Quarter: 2018Q3

REPORT INFORMATION
  Report Type: Spontaneous
  Country: US (occurrence: US)
  Receive Date: 20180710
  Receipt Date: 20180710
  Transmission Date: 20181010
  Serious: Yes (Disabling)
  Sender: FDA-Public Use
  Company Number: None

PATIENT
  Age: 67 Year
  Sex: Female
  Weight: 53.73 kg

DRUGS (12)
  1. GINGER. [Concomitant]
     Active Substance: GINGER
  2. GINKGO [Concomitant]
     Active Substance: GINKGO
  3. CHLORELLA [Concomitant]
  4. MILK THISTLE [Concomitant]
     Active Substance: DIETARY SUPPLEMENT\HERBALS\MILK THISTLE
  5. GADOLINIUM [Suspect]
     Active Substance: GADOLINIUM
     Indication: NUCLEAR MAGNETIC RESONANCE IMAGING
     Route: 042
     Dates: start: 20160424, end: 20180424
  6. VITAMIN B COMPLEX [Concomitant]
     Active Substance: CYANOCOBALAMIN\DEXPANTHENOL\NIACINAMIDE\PYRIDOXINE HYDROCHLORIDE\RIBOFLAVIN 5^-PHOSPHATE SODIUM\THIAMINE HYDROCHLORIDE\VITAMIN B COMPLEX
  7. KRILL OIL [Concomitant]
     Active Substance: DIETARY SUPPLEMENT
  8. R?ALA [Concomitant]
  9. TURMERIC [Concomitant]
     Active Substance: HERBALS\TURMERIC
  10. HAWTHORNE [Concomitant]
  11. BIT C [Concomitant]
  12. METHIMAZOLE. [Concomitant]
     Active Substance: METHIMAZOLE

REACTIONS (15)
  - Dysphagia [None]
  - Social avoidant behaviour [None]
  - Insomnia [None]
  - Alopecia [None]
  - Condition aggravated [None]
  - Limb discomfort [None]
  - Dizziness [None]
  - Confusional state [None]
  - Tremor [None]
  - Aphasia [None]
  - Thyroid mass [None]
  - Depression [None]
  - Night sweats [None]
  - Feeling abnormal [None]
  - Anxiety [None]

NARRATIVE: CASE EVENT DATE: 20171208
